FAERS Safety Report 25660165 (Version 2)
Quarter: 2025Q4

REPORT INFORMATION
  Report Type: Spontaneous
  Country: EU (occurrence: EU)
  Receive Date: 20250808
  Receipt Date: 20251103
  Transmission Date: 20260118
  Serious: Yes (Death)
  Sender: FRESENIUS KABI
  Company Number: None

PATIENT
  Age: 60 Year
  Sex: Male
  Weight: 98 kg

DRUGS (13)
  1. PROPOFOL [Suspect]
     Active Substance: PROPOFOL
     Indication: General anaesthesia
     Dosage: 12MG/KG/HOUR
     Route: 042
     Dates: start: 20250610, end: 20250610
  2. AMLODIPINE BESYLATE\IRBESARTAN [Concomitant]
     Active Substance: AMLODIPINE BESYLATE\IRBESARTAN
     Indication: Product used for unknown indication
  3. ASPIRIN [Concomitant]
     Active Substance: ASPIRIN
     Indication: Product used for unknown indication
  4. CRESTOR 20 mg, coated tablet [Concomitant]
     Indication: Product used for unknown indication
  5. ALDACTAZINE 25 mg/15 mg, scored tablet [Concomitant]
     Indication: Product used for unknown indication
  6. LUZADEL 266, micrograms, soft capsule [Concomitant]
     Indication: Product used for unknown indication
  7. OMEPRAZOLE [Concomitant]
     Active Substance: OMEPRAZOLE
     Indication: Product used for unknown indication
  8. BUVENTOL EASYHALER 100 micrograms/dose, powder for inhalation [Concomitant]
     Indication: Product used for unknown indication
  9. GLYCOPYRRONIUM [Concomitant]
     Active Substance: GLYCOPYRRONIUM
     Indication: Product used for unknown indication
  10. INNOVAIR [Concomitant]
     Active Substance: BECLOMETHASONE DIPROPIONATE\FORMOTEROL
     Indication: Product used for unknown indication
  11. MOLSIDOMINE [Concomitant]
     Active Substance: MOLSIDOMINE
     Indication: Product used for unknown indication
  12. LORAZEPAM [Concomitant]
     Active Substance: LORAZEPAM
     Indication: Product used for unknown indication
  13. PRAZEPAM [Concomitant]
     Active Substance: PRAZEPAM
     Indication: Product used for unknown indication

REACTIONS (1)
  - Propofol infusion syndrome [Fatal]

NARRATIVE: CASE EVENT DATE: 20250611
